FAERS Safety Report 17213426 (Version 2)
Quarter: 2020Q1

REPORT INFORMATION
  Report Type: Spontaneous
  Country: JP (occurrence: JP)
  Receive Date: 20191230
  Receipt Date: 20200217
  Transmission Date: 20200409
  Serious: Yes (Hospitalization, Other)
  Sender: FDA-Public Use
  Company Number: JP-MACLEODS PHARMACEUTICALS US LTD-MAC2019024593

PATIENT

DRUGS (19)
  1. PREDNISOLONE. [Suspect]
     Active Substance: PREDNISOLONE
     Dosage: UNK., REDUCTION IN THE DOSE
     Route: 048
  2. PREDNISOLONE. [Suspect]
     Active Substance: PREDNISOLONE
     Dosage: UNK., DOSE WAS CAREFULLY TAPERED
     Route: 048
  3. CICLOSPORIN [Suspect]
     Active Substance: CYCLOSPORINE
     Indication: DRUG REACTION WITH EOSINOPHILIA AND SYSTEMIC SYMPTOMS
     Dosage: 50 MILLIGRAM, QD
     Route: 065
  4. CICLOSPORIN [Suspect]
     Active Substance: CYCLOSPORINE
     Indication: LIVER DISORDER
     Dosage: UNK
     Route: 065
  5. METHYL-PSL PULSE THERAPY [Suspect]
     Active Substance: METHYLPREDNISOLONE
     Indication: DRUG REACTION WITH EOSINOPHILIA AND SYSTEMIC SYMPTOMS
     Dosage: 1 GRAM, QD
     Route: 065
  6. VALSARTAN. [Suspect]
     Active Substance: VALSARTAN
     Indication: PRODUCT USED FOR UNKNOWN INDICATION
     Dosage: UNK
     Route: 065
  7. PREDNISOLONE. [Suspect]
     Active Substance: PREDNISOLONE
     Indication: DRUG REACTION WITH EOSINOPHILIA AND SYSTEMIC SYMPTOMS
     Dosage: 1 MILLIGRAM, QD
     Route: 048
  8. PREDNISOLONE. [Suspect]
     Active Substance: PREDNISOLONE
     Dosage: 7.5 MILLIGRAM, QD
     Route: 065
  9. LYSOZYME HYDROCHLORIDE [Concomitant]
     Active Substance: LYSOZYME HYDROCHLORIDE
     Indication: PRODUCT USED FOR UNKNOWN INDICATION
     Dosage: UNK
     Route: 065
  10. MAOTO EXTRACT [Concomitant]
     Indication: PRODUCT USED FOR UNKNOWN INDICATION
     Dosage: UNK
     Route: 065
  11. CLARITHROMYCIN. [Concomitant]
     Active Substance: CLARITHROMYCIN
     Indication: PRODUCT USED FOR UNKNOWN INDICATION
     Dosage: UNK
     Route: 065
  12. PREDNISOLONE. [Suspect]
     Active Substance: PREDNISOLONE
     Indication: LIVER DISORDER
     Dosage: 20 MILLIGRAM, QD
     Route: 065
  13. PREDNISOLONE. [Suspect]
     Active Substance: PREDNISOLONE
     Dosage: 1 MILLIGRAM/KILOGRAM
     Route: 048
  14. L-CARBOCISTEINE [Concomitant]
     Active Substance: CARBOCYSTEINE
     Indication: PRODUCT USED FOR UNKNOWN INDICATION
     Dosage: UNK
     Route: 065
  15. IMMUNGLOBULIN [Concomitant]
     Active Substance: HUMAN IMMUNOGLOBULIN G
     Indication: LIVER DISORDER
     Dosage: UNK
     Route: 042
  16. PARACETAMOL [Suspect]
     Active Substance: ACETAMINOPHEN
     Indication: PYREXIA
     Dosage: UNK
     Route: 065
  17. IMMUNGLOBULIN [Concomitant]
     Active Substance: HUMAN IMMUNOGLOBULIN G
     Indication: DRUG REACTION WITH EOSINOPHILIA AND SYSTEMIC SYMPTOMS
  18. PREDNISOLONE. [Suspect]
     Active Substance: PREDNISOLONE
     Dosage: 40 MILLIGRAM, QD
     Route: 065
  19. METHYL-PSL PULSE THERAPY [Suspect]
     Active Substance: METHYLPREDNISOLONE
     Indication: LIVER DISORDER
     Dosage: 1 GRAM, QD
     Route: 065

REACTIONS (7)
  - Tubulointerstitial nephritis [Unknown]
  - Drug reaction with eosinophilia and systemic symptoms [Recovering/Resolving]
  - Vitiligo [Unknown]
  - Photosensitivity reaction [Unknown]
  - Fulminant type 1 diabetes mellitus [Unknown]
  - Cytomegalovirus infection [Unknown]
  - Herpes zoster [Unknown]
